FAERS Safety Report 9253996 (Version 1)
Quarter: 2013Q1

REPORT INFORMATION
  Report Type: Spontaneous
  Country: US (occurrence: None)
  Receive Date: 20121211
  Receipt Date: 20121211
  Transmission Date: 20140127
  Serious: Yes (Hospitalization)
  Sender: FDA-Public Use
  Company Number: 1209USA003925

PATIENT
  Sex: Male

DRUGS (4)
  1. ISENTRESS [Suspect]
     Route: 048
  2. VIREAD [Suspect]
     Route: 048
  3. ADCIRCA (TADALAFIL) [Suspect]
     Route: 048
  4. EPIVIR [Suspect]
     Route: 048

REACTIONS (2)
  - Anaemia [None]
  - Neutropenia [None]
